FAERS Safety Report 6504037-8 (Version None)
Quarter: 2009Q4

REPORT INFORMATION
  Report Type: 
  Country: None (occurrence: None)
  Receive Date: 20091215
  Receipt Date: 20091207
  Transmission Date: 20100525
  Serious: Yes (Life-Threatening)
  Sender: FDA-Public Use
  Company Number: TOR 2009-0092

PATIENT
  Age: 76 Year
  Sex: Female

DRUGS (3)
  1. FARESTON [Suspect]
     Indication: BREAST CANCER STAGE III
     Dosage: 120 MG ORAL
     Route: 048
     Dates: start: 20080606, end: 20080921
  2. FARESTON [Suspect]
     Indication: BREAST CANCER STAGE III
     Dosage: 120 MG ORAL
     Route: 048
     Dates: start: 20080930, end: 20081130
  3. UNSPECIFIC DRUGS [Concomitant]

REACTIONS (1)
  - SUBARACHNOID HAEMORRHAGE [None]
